FAERS Safety Report 23867493 (Version 1)
Quarter: 2024Q2

REPORT INFORMATION
  Report Type: Spontaneous
  Country: US (occurrence: US)
  Receive Date: 20240517
  Receipt Date: 20240517
  Transmission Date: 20240715
  Serious: No
  Sender: FDA-Public Use
  Company Number: US-HALEON-2174970

PATIENT
  Sex: Male

DRUGS (1)
  1. TUMS EX [Suspect]
     Active Substance: CALCIUM CARBONATE
     Indication: Dyspepsia
     Dosage: EXPDATE:2022

REACTIONS (2)
  - Chest pain [Unknown]
  - Expired product administered [Unknown]
